FAERS Safety Report 15157751 (Version 5)
Quarter: 2020Q4

REPORT INFORMATION
  Report Type: Spontaneous
  Country: US (occurrence: US)
  Receive Date: 20180718
  Receipt Date: 20201228
  Transmission Date: 20210113
  Serious: No
  Sender: FDA-Public Use
  Company Number: US-PFIZER INC-2018287319

PATIENT
  Age: 54 Year
  Sex: Male

DRUGS (7)
  1. CITALOPRAM [Concomitant]
     Active Substance: CITALOPRAM HYDROBROMIDE
     Dosage: UNK (YEARS)
  2. OMEPRAZOLE. [Concomitant]
     Active Substance: OMEPRAZOLE
     Dosage: UNK (YEARS)
  3. LYRICA [Suspect]
     Active Substance: PREGABALIN
     Indication: MULTIPLE SCLEROSIS
     Dosage: 100 MG, 2X/DAY
  4. DONEPEZIL. [Concomitant]
     Active Substance: DONEPEZIL
     Dosage: UNK (YEARS)
  5. BACLOFEN. [Concomitant]
     Active Substance: BACLOFEN
     Dosage: UNK (YEARS)
  6. LYRICA [Suspect]
     Active Substance: PREGABALIN
     Indication: SENSITIVE SKIN
     Dosage: 200 MG, 3X/DAY; (TAKE AT 0600, 1500, AND 2300)
     Route: 048
  7. CRESTOR [Concomitant]
     Active Substance: ROSUVASTATIN CALCIUM
     Dosage: UNK (1 YEAR)

REACTIONS (5)
  - Dysgraphia [Unknown]
  - Drug withdrawal syndrome [Recovered/Resolved]
  - Off label use [Unknown]
  - Nausea [Recovered/Resolved]
  - Illness [Recovered/Resolved]
